FAERS Safety Report 6112264-7 (Version None)
Quarter: 2009Q1

REPORT INFORMATION
  Report Type: 
  Country: None (occurrence: None)
  Receive Date: 20090310
  Receipt Date: 20090225
  Transmission Date: 20090719
  Serious: Yes (Death)
  Sender: FDA-Public Use
  Company Number: GXKR2009US02467

PATIENT

DRUGS (1)
  1. DIPHENHYDRAMINE (NGX) (DIPHENHYDRAMINE) UNKNOWN [Suspect]

REACTIONS (5)
  - ACCIDENT [None]
  - DRUG LEVEL BELOW THERAPEUTIC [None]
  - DRUG TOXICITY [None]
  - SEDATION [None]
  - SOMNOLENCE [None]
